FAERS Safety Report 10243752 (Version 2)
Quarter: 2014Q2

REPORT INFORMATION
  Report Type: Spontaneous
  Country: US (occurrence: US)
  Receive Date: 20140618
  Receipt Date: 20140618
  Transmission Date: 20141212
  Serious: Yes (Hospitalization, Other)
  Sender: FDA-Public Use
  Company Number: US-US-EMD SERONO, INC.-230675J08USA

PATIENT
  Age: 42 Year
  Sex: Female
  Weight: 92 kg

DRUGS (3)
  1. REBIF [Suspect]
     Indication: MULTIPLE SCLEROSIS
     Route: 058
     Dates: start: 20051001
  2. UNSPECIFIED MEDICATIONS [Concomitant]
  3. INSULIN [Concomitant]
     Indication: DIABETES MELLITUS

REACTIONS (6)
  - Gallbladder disorder [Unknown]
  - Uterine cancer [Recovered/Resolved]
  - Renal failure [Recovered/Resolved]
  - Vulval cancer [Not Recovered/Not Resolved]
  - Pneumonia [Unknown]
  - Skin ulcer [Unknown]
